FAERS Safety Report 4471964-5 (Version None)
Quarter: 2004Q4

REPORT INFORMATION
  Report Type: 
  Country: None (occurrence: None)
  Receive Date: 20041007
  Receipt Date: 20040921
  Transmission Date: 20050328
  Serious: Yes (Hospitalization)
  Sender: FDA-Public Use
  Company Number: 2004234992FR

PATIENT
  Sex: Male

DRUGS (1)
  1. DOSTINEX [Suspect]
     Indication: PROLACTINOMA
     Dosage: ORAL
     Route: 048

REACTIONS (1)
  - PLEURISY [None]
